FAERS Safety Report 5816138-8 (Version None)
Quarter: 2008Q3

REPORT INFORMATION
  Report Type: 
  Country: None (occurrence: None)
  Receive Date: 20080721
  Receipt Date: 20080710
  Transmission Date: 20090109
  Serious: Yes (Other)
  Sender: FDA-Public Use
  Company Number: US-AVENTIS-200814243US

PATIENT
  Sex: Female

DRUGS (1)
  1. KETEK [Suspect]
     Indication: LYME DISEASE
     Dosage: DOSE: UNK

REACTIONS (7)
  - HEPATIC FAILURE [None]
  - HEPATOMEGALY [None]
  - HEPATOTOXICITY [None]
  - HERNIA [None]
  - HERNIA REPAIR [None]
  - MUSCLE STRAIN [None]
  - OFF LABEL USE [None]
